FAERS Safety Report 9017672 (Version 1)
Quarter: 2013Q1

REPORT INFORMATION
  Report Type: Spontaneous
  Country: US (occurrence: US)
  Receive Date: 20130118
  Receipt Date: 20130118
  Transmission Date: 20140127
  Serious: Yes (Other)
  Sender: FDA-Public Use
  Company Number: US-009507513-1301USA004353

PATIENT
  Age: 11 Year
  Sex: Male

DRUGS (5)
  1. SINGULAIR [Suspect]
     Indication: SLEEP DISORDER THERAPY
     Route: 048
  2. ALBUTEROL SULFATE [Suspect]
  3. ZYRTEC [Suspect]
  4. CLONIDINE HYDROCHLORIDE [Suspect]
     Route: 048
  5. CONCERTA [Suspect]

REACTIONS (2)
  - Trismus [Unknown]
  - Hypersensitivity [Unknown]
